FAERS Safety Report 8184875-9 (Version None)
Quarter: 2012Q1

REPORT INFORMATION
  Report Type: 
  Country: None (occurrence: None)
  Receive Date: 20120305
  Receipt Date: 20120301
  Transmission Date: 20120608
  Serious: Yes (Hospitalization)
  Sender: FDA-Public Use
  Company Number: US-GLAXOSMITHKLINE-A0848938A

PATIENT
  Age: 57 Year
  Sex: Male

DRUGS (4)
  1. DIOVAN HCT [Concomitant]
  2. AVANDIA [Suspect]
     Indication: DIABETES MELLITUS
     Dosage: 4MG TWICE PER DAY
     Route: 048
     Dates: start: 20010928, end: 20070322
  3. AVANDAMET [Suspect]
     Indication: DIABETES MELLITUS
     Route: 048
  4. GLUCOTROL [Concomitant]

REACTIONS (5)
  - CARDIAC FAILURE CONGESTIVE [None]
  - RENAL INJURY [None]
  - CARDIOVASCULAR DISORDER [None]
  - CONGESTIVE CARDIOMYOPATHY [None]
  - SUDDEN CARDIAC DEATH [None]
